FAERS Safety Report 6517858-2 (Version None)
Quarter: 2009Q4

REPORT INFORMATION
  Report Type: 
  Country: None (occurrence: None)
  Receive Date: 20091224
  Receipt Date: 20091221
  Transmission Date: 20100525
  Serious: Yes (Death)
  Sender: FDA-Public Use
  Company Number: PHHY2009AU53575

PATIENT
  Sex: Male
  Weight: 65.4 kg

DRUGS (3)
  1. CLOZARIL [Suspect]
     Dosage: 500 MG, UNK
     Dates: start: 20051115
  2. BIPERIDEN HYDROCHLORIDE TAB [Concomitant]
     Dosage: 2 MG, 1/2 BD
  3. CYPROTERONE [Concomitant]
     Dosage: 50 MG, BID

REACTIONS (3)
  - ANXIETY [None]
  - CARDIAC ARREST [None]
  - PALLOR [None]
